FAERS Safety Report 17069502 (Version 1)
Quarter: 2019Q4

REPORT INFORMATION
  Report Type: Report from Study
  Country: JP (occurrence: JP)
  Receive Date: 20191125
  Receipt Date: 20191125
  Transmission Date: 20200122
  Serious: Yes (Other)
  Sender: FDA-Public Use
  Company Number: JP-BEH-2019098427

PATIENT
  Age: 8 Year

DRUGS (1)
  1. HIZENTRA [Suspect]
     Active Substance: HUMAN IMMUNOGLOBULIN G
     Indication: ACTIVATED PI3 KINASE DELTA SYNDROME
     Route: 058

REACTIONS (1)
  - Drug ineffective [Unknown]
